FAERS Safety Report 9173871 (Version 1)
Quarter: 2013Q1

REPORT INFORMATION
  Report Type: Spontaneous
  Country: US (occurrence: None)
  Receive Date: 20130314
  Receipt Date: 20130314
  Transmission Date: 20140127
  Serious: Yes (Hospitalization)
  Sender: FDA-Public Use
  Company Number: KV201300044

PATIENT
  Age: 39 Year
  Sex: Female

DRUGS (2)
  1. MAKENA (HYDROXYPROGESTERONE CAPROATE 250 MG/ML) INJECTION, 250 MG/ML [Suspect]
     Indication: PREMATURE DELIVERY
     Route: 030
     Dates: start: 20121023, end: 20121023
  2. PRENATAL [Concomitant]

REACTIONS (4)
  - Placenta praevia haemorrhage [None]
  - Caesarean section [None]
  - Maternal exposure during pregnancy [None]
  - Premature delivery [None]
